FAERS Safety Report 14846987 (Version 1)
Quarter: 2018Q2

REPORT INFORMATION
  Report Type: Report from Study
  Country: US (occurrence: US)
  Receive Date: 20180504
  Receipt Date: 20180504
  Transmission Date: 20180711
  Serious: Yes (Hospitalization, Other)
  Sender: FDA-Public Use
  Company Number: US-ASPEN-GLO2018US004224

PATIENT
  Age: 6 Year
  Sex: Male
  Weight: 22.7 kg

DRUGS (26)
  1. CYCLOPHOSPHAMIDE. [Suspect]
     Active Substance: CYCLOPHOSPHAMIDE
     Indication: ACUTE LYMPHOCYTIC LEUKAEMIA
     Dosage: 1000 MG/M2, UNK
     Route: 065
     Dates: start: 20170123
  2. CYCLOPHOSPHAMIDE. [Suspect]
     Active Substance: CYCLOPHOSPHAMIDE
     Dosage: 876 MG, SINGLE
     Route: 042
  3. CYTARABINE. [Suspect]
     Active Substance: CYTARABINE
     Indication: ACUTE LYMPHOCYTIC LEUKAEMIA
     Dosage: 75 MG/M2, DAYS 1-4, 8-11
     Route: 042
     Dates: start: 20170123
  4. MERCAPTOPURINE. [Suspect]
     Active Substance: MERCAPTOPURINE
     Indication: ACUTE LYMPHOCYTIC LEUKAEMIA
     Dosage: 60 MG/M2, DAYS 1-14
     Route: 048
     Dates: start: 20170123
  5. METHOTREXATE. [Suspect]
     Active Substance: METHOTREXATE
     Dosage: 4175 UNK
     Route: 037
  6. VINCRISTINE [Suspect]
     Active Substance: VINCRISTINE
     Indication: ACUTE LYMPHOCYTIC LEUKAEMIA
     Dosage: 1.5 MG/M2, SINGLE
     Route: 042
     Dates: start: 20170206
  7. VINCRISTINE [Suspect]
     Active Substance: VINCRISTINE
     Dosage: 1.3 MG
     Route: 042
     Dates: start: 20170327
  8. TIOGUANINE [Suspect]
     Active Substance: THIOGUANINE ANHYDROUS
     Indication: ACUTE LYMPHOCYTIC LEUKAEMIA
     Dosage: 60 MG, QD
     Route: 048
     Dates: start: 20170724
  9. PEGASPARGASE [Suspect]
     Active Substance: PEGASPARGASE
     Dosage: 2175 IU
     Route: 042
  10. INCB018424 [Suspect]
     Active Substance: RUXOLITINIB
     Dosage: 25 UNK, BID
     Route: 048
     Dates: start: 20170724
  11. PEGASPARGASE [Suspect]
     Active Substance: PEGASPARGASE
     Dosage: 21.75 IU, SINGLE
     Route: 042
     Dates: start: 20170808
  12. CYTARABINE. [Suspect]
     Active Substance: CYTARABINE
     Dosage: 66 MG, SINGLE
     Route: 042
     Dates: start: 20170724
  13. METHOTREXATE. [Suspect]
     Active Substance: METHOTREXATE
     Dosage: 12 UNK
     Route: 037
  14. BACTRIM [Concomitant]
     Active Substance: SULFAMETHOXAZOLE\TRIMETHOPRIM
     Indication: PRODUCT USED FOR UNKNOWN INDICATION
     Dosage: UNK
     Dates: start: 20161220
  15. LEVOFLOXACIN. [Concomitant]
     Active Substance: LEVOFLOXACIN
     Indication: PRODUCT USED FOR UNKNOWN INDICATION
     Dosage: UNK
     Route: 065
     Dates: start: 20170303
  16. INCB018424 [Suspect]
     Active Substance: RUXOLITINIB
     Dosage: 25 UNK
     Route: 048
     Dates: start: 20170327
  17. INCB018424 [Suspect]
     Active Substance: RUXOLITINIB
     Indication: ACUTE LYMPHOCYTIC LEUKAEMIA
     Dosage: 25 MG, BID
     Route: 048
     Dates: start: 20170123
  18. VINCRISTINE [Suspect]
     Active Substance: VINCRISTINE
     Dosage: 1.3 UNK
     Route: 042
  19. VINCRISTINE [Suspect]
     Active Substance: VINCRISTINE
     Dosage: 1.3 MG
     Route: 042
     Dates: start: 20170808
  20. LEUCOVORIN. [Suspect]
     Active Substance: LEUCOVORIN
     Indication: ACUTE LYMPHOCYTIC LEUKAEMIA
     Dosage: 15 MG, QID
     Route: 048
     Dates: start: 20170329
  21. CYCLOPHOSPHAMIDE. [Suspect]
     Active Substance: CYCLOPHOSPHAMIDE
     Dosage: 860 MG/M2
     Route: 042
  22. CYTARABINE. [Suspect]
     Active Substance: CYTARABINE
     Dosage: 64 MG
     Route: 042
  23. MERCAPTOPURINE. [Suspect]
     Active Substance: MERCAPTOPURINE
     Dosage: 25 MG, QD
     Route: 048
     Dates: start: 20170327
  24. METHOTREXATE. [Suspect]
     Active Substance: METHOTREXATE
     Indication: ACUTE LYMPHOCYTIC LEUKAEMIA
     Dosage: 12 MG, UNK
     Route: 037
     Dates: start: 20170123
  25. METHOTREXATE. [Suspect]
     Active Substance: METHOTREXATE
     Dosage: 12 MG, SINGLE
     Route: 037
  26. PEGASPARGASE [Suspect]
     Active Substance: PEGASPARGASE
     Indication: ACUTE LYMPHOCYTIC LEUKAEMIA
     Dosage: 2500 IU/M2, SINGLE
     Route: 042
     Dates: start: 20170206

REACTIONS (3)
  - Pyrexia [Recovered/Resolved]
  - Febrile neutropenia [Recovered/Resolved]
  - Human metapneumovirus test positive [Recovered/Resolved]

NARRATIVE: CASE EVENT DATE: 20170211
